FAERS Safety Report 4282254-8 (Version None)
Quarter: 2004Q1

REPORT INFORMATION
  Report Type: 
  Country: None (occurrence: None)
  Receive Date: 20040108
  Receipt Date: 20030602
  Transmission Date: 20041129
  Serious: Yes (Hospitalization)
  Sender: FDA-Public Use
  Company Number: HQWYE453203JUN03

PATIENT
  Age: 66 Year
  Sex: Female

DRUGS (1)
  1. PREMPRO [Suspect]
     Indication: PROPHYLAXIS
     Dosage: ONE TABLET DAILY 0.625MG/2.5MG, ORAL
     Route: 048
     Dates: start: 19820101, end: 19880101

REACTIONS (1)
  - MYOCARDIAL INFARCTION [None]
